FAERS Safety Report 9883697 (Version 2)
Quarter: 2014Q1

REPORT INFORMATION
  Report Type: Spontaneous
  Country: US (occurrence: US)
  Receive Date: 20140210
  Receipt Date: 20140304
  Transmission Date: 20141002
  Serious: No
  Sender: FDA-Public Use
  Company Number: US-B.I. PHARMACEUTICALS,INC./RIDGEFIELD-2014-BI-04997BP

PATIENT
  Age: 72 Year
  Sex: Female
  Weight: 70 kg

DRUGS (8)
  1. SPIRIVA [Suspect]
     Indication: CHRONIC OBSTRUCTIVE PULMONARY DISEASE
     Dosage: 18 MCG
     Route: 055
     Dates: start: 201304
  2. DIGITALIS [Concomitant]
     Indication: ATRIAL FIBRILLATION
     Route: 048
  3. ASPIRIN [Concomitant]
     Dosage: 81 MG
     Route: 048
  4. VALIUM [Concomitant]
     Indication: VERTIGO
     Route: 048
  5. HYDROCHLOROTHIAZIDE [Concomitant]
     Route: 048
  6. CARDIZEM [Concomitant]
     Dosage: 240 MG
     Route: 048
  7. MECLIZINE [Concomitant]
     Indication: VERTIGO
     Route: 048
  8. COUMADIN [Concomitant]
     Indication: ATRIAL FIBRILLATION
     Route: 048

REACTIONS (2)
  - Dyspnoea [Recovered/Resolved]
  - Product quality issue [Recovered/Resolved]
